FAERS Safety Report 6667483-8 (Version None)
Quarter: 2010Q2

REPORT INFORMATION
  Report Type: 
  Country: None (occurrence: None)
  Receive Date: 20100405
  Receipt Date: 20100319
  Transmission Date: 20101027
  Serious: Yes (Other)
  Sender: FDA-Public Use
  Company Number: US-BAYER-201020278GPV

PATIENT
  Age: 52 Year
  Sex: Male

DRUGS (23)
  1. FLUDARABINE PHOSPHATE [Suspect]
     Indication: STEM CELL TRANSPLANT
  2. BUSULFEX [Suspect]
     Indication: STEM CELL TRANSPLANT
  3. ANTITHYMOCYTE GLOBULINS [Suspect]
     Indication: STEM CELL TRANSPLANT
  4. VINCRISTINE [Concomitant]
     Indication: MULTIPLE MYELOMA
  5. DOXORUBICIN HCL [Concomitant]
     Indication: MULTIPLE MYELOMA
  6. DOXORUBICIN HCL [Concomitant]
  7. DOXORUBICIN HCL [Concomitant]
  8. DOXORUBICIN HCL [Concomitant]
  9. DOXORUBICIN HCL [Concomitant]
  10. DOXORUBICIN HCL [Concomitant]
  11. DEXAMETHASONE [Concomitant]
     Indication: MULTIPLE MYELOMA
  12. VELCADE [Concomitant]
     Indication: MULTIPLE MYELOMA
  13. VELCADE [Concomitant]
  14. VELCADE [Concomitant]
  15. VELCADE [Concomitant]
  16. VELCADE [Concomitant]
  17. THALOMID [Concomitant]
     Indication: MULTIPLE MYELOMA
  18. THALOMID [Concomitant]
  19. THALOMID [Concomitant]
  20. THALOMID [Concomitant]
  21. THALOMID [Concomitant]
  22. CYCLOPHOSPHAMIDE [Concomitant]
     Indication: MULTIPLE MYELOMA
  23. TACROLIMUS [Concomitant]
     Indication: PROPHYLAXIS AGAINST GRAFT VERSUS HOST DISEASE

REACTIONS (4)
  - CYSTITIS HAEMORRHAGIC [None]
  - HYPERTENSION [None]
  - MULTIPLE MYELOMA [None]
  - RENAL FAILURE ACUTE [None]
